FAERS Safety Report 5776255-8 (Version None)
Quarter: 2008Q2

REPORT INFORMATION
  Report Type: 
  Country: None (occurrence: None)
  Receive Date: 20080616
  Receipt Date: 20080604
  Transmission Date: 20081010
  Serious: Yes (Hospitalization)
  Sender: FDA-Public Use
  Company Number: MEDI-0006702

PATIENT
  Age: 10 Month
  Sex: Male
  Weight: 6.7 kg

DRUGS (6)
  1. SYNAGIS [Suspect]
     Dosage: 100 MG, 1 IN 1 M, 75 MG, 1 IN 1 M, 90 MG, 1 IN 1 M
     Dates: start: 20070914, end: 20071221
  2. SYNAGIS [Suspect]
     Dosage: 100 MG, 1 IN 1 M, 75 MG, 1 IN 1 M, 90 MG, 1 IN 1 M
     Dates: start: 20070914
  3. SYNAGIS [Suspect]
     Dosage: 100 MG, 1 IN 1 M, 75 MG, 1 IN 1 M, 90 MG, 1 IN 1 M
     Dates: start: 20071018
  4. SYNAGIS [Suspect]
     Dosage: 100 MG, 1 IN 1 M, 75 MG, 1 IN 1 M, 90 MG, 1 IN 1 M
     Dates: start: 20071119
  5. SYNAGIS [Suspect]
     Dosage: 100 MG, 1 IN 1 M, 75 MG, 1 IN 1 M, 90 MG, 1 IN 1 M
     Dates: start: 20080121
  6. FERRUMMATE (FERROUS GLUCONATE) [Concomitant]

REACTIONS (2)
  - CROUP INFECTIOUS [None]
  - LARYNGEAL STENOSIS [None]
